FAERS Safety Report 17875889 (Version 7)
Quarter: 2023Q4

REPORT INFORMATION
  Report Type: Spontaneous
  Country: US (occurrence: US)
  Receive Date: 20200609
  Receipt Date: 20231120
  Transmission Date: 20240109
  Serious: No
  Sender: FDA-Public Use
  Company Number: US-PFIZER INC-2020104315

PATIENT
  Age: 65 Year
  Sex: Female

DRUGS (2)
  1. FRAGMIN [Suspect]
     Active Substance: DALTEPARIN SODIUM
     Dosage: 5000 UNITS/0.2 ML SQ QD 90 DAYS SUPPLY WITH 3 REFILLS)
  2. FRAGMIN [Suspect]
     Active Substance: DALTEPARIN SODIUM
     Dosage: UNK, DAILY (INJECT 0.2 ML (5,000 UNITS TOTAL ) UNDER THE SKIN DAILY FOR 92 DAYS.)
     Route: 058
     Dates: start: 20221205

REACTIONS (2)
  - Drug ineffective [Unknown]
  - Aphonia [Unknown]
